FAERS Safety Report 23621744 (Version 1)
Quarter: 2024Q1

REPORT INFORMATION
  Report Type: Spontaneous
  Country: DE (occurrence: DE)
  Receive Date: 20240312
  Receipt Date: 20240312
  Transmission Date: 20240410
  Serious: Yes (Hospitalization)
  Sender: FDA-Public Use
  Company Number: DE-JNJFOC-20240251636

PATIENT
  Age: 74 Year
  Sex: Male
  Weight: 102 kg

DRUGS (53)
  1. DEXAMETHASONE [Suspect]
     Active Substance: DEXAMETHASONE
     Indication: Plasma cell myeloma
     Dosage: 20.000MG
     Route: 042
     Dates: start: 20231227
  2. DEXAMETHASONE [Suspect]
     Active Substance: DEXAMETHASONE
     Dosage: 20.000MG
     Route: 042
     Dates: start: 20230124
  3. DEXAMETHASONE [Suspect]
     Active Substance: DEXAMETHASONE
     Dosage: 20.000MG
     Route: 042
     Dates: start: 20230515
  4. DEXAMETHASONE [Suspect]
     Active Substance: DEXAMETHASONE
     Dosage: 20.000MG
     Route: 042
     Dates: start: 20230522
  5. DEXAMETHASONE [Suspect]
     Active Substance: DEXAMETHASONE
     Dosage: 20.000MG
     Route: 042
     Dates: start: 20230530
  6. DEXAMETHASONE [Suspect]
     Active Substance: DEXAMETHASONE
     Dosage: 20.000MG
     Route: 042
     Dates: start: 20230606
  7. DEXAMETHASONE [Suspect]
     Active Substance: DEXAMETHASONE
     Dosage: 20.000MG
     Route: 042
     Dates: start: 20230612
  8. DEXAMETHASONE [Suspect]
     Active Substance: DEXAMETHASONE
     Dosage: 20.000MG
     Route: 042
     Dates: start: 20230619
  9. DEXAMETHASONE [Suspect]
     Active Substance: DEXAMETHASONE
     Dosage: 20.000MG
     Route: 042
     Dates: start: 20230626
  10. DEXAMETHASONE [Suspect]
     Active Substance: DEXAMETHASONE
     Dosage: 20.000MG
     Route: 042
     Dates: start: 20230703
  11. DEXAMETHASONE [Suspect]
     Active Substance: DEXAMETHASONE
     Dosage: 20.000MG
     Route: 042
     Dates: start: 20230710
  12. DEXAMETHASONE [Suspect]
     Active Substance: DEXAMETHASONE
     Dosage: 20.000MG
     Route: 042
     Dates: start: 20230721
  13. DEXAMETHASONE [Suspect]
     Active Substance: DEXAMETHASONE
     Dosage: 20.000MG
     Route: 042
     Dates: start: 20230807
  14. DEXAMETHASONE [Suspect]
     Active Substance: DEXAMETHASONE
     Dosage: 20.000MG
     Route: 042
     Dates: start: 20230821
  15. DEXAMETHASONE [Suspect]
     Active Substance: DEXAMETHASONE
     Dosage: 20.000MG
     Route: 042
     Dates: start: 20230904
  16. DEXAMETHASONE [Suspect]
     Active Substance: DEXAMETHASONE
     Dosage: 20.000MG
     Route: 042
     Dates: start: 20230918
  17. DEXAMETHASONE [Suspect]
     Active Substance: DEXAMETHASONE
     Dosage: 20.000MG
     Route: 042
     Dates: start: 20231002
  18. DEXAMETHASONE [Suspect]
     Active Substance: DEXAMETHASONE
     Dosage: 20.000MG
     Route: 042
     Dates: start: 20231016
  19. DEXAMETHASONE [Suspect]
     Active Substance: DEXAMETHASONE
     Dosage: 20.000MG
     Route: 042
     Dates: start: 20231030
  20. DEXAMETHASONE [Suspect]
     Active Substance: DEXAMETHASONE
     Dosage: 20.000MG
     Route: 042
     Dates: start: 20231127
  21. DARATUMUMAB [Suspect]
     Active Substance: DARATUMUMAB
     Indication: Plasma cell myeloma
     Dosage: 1800.000MG
     Route: 058
     Dates: start: 20230918
  22. DARATUMUMAB [Suspect]
     Active Substance: DARATUMUMAB
     Dosage: 1800.000MG
     Route: 058
     Dates: start: 20230522
  23. DARATUMUMAB [Suspect]
     Active Substance: DARATUMUMAB
     Dosage: 1800.000MG
     Route: 058
     Dates: start: 20230522
  24. DARATUMUMAB [Suspect]
     Active Substance: DARATUMUMAB
     Dosage: 1800.000MG
     Route: 058
     Dates: start: 20230530
  25. DARATUMUMAB [Suspect]
     Active Substance: DARATUMUMAB
     Dosage: 1800.000MG
     Route: 058
     Dates: start: 20230530
  26. DARATUMUMAB [Suspect]
     Active Substance: DARATUMUMAB
     Dosage: 1800.000MG
     Route: 058
     Dates: start: 20230606
  27. DARATUMUMAB [Suspect]
     Active Substance: DARATUMUMAB
     Dosage: 1800.000MG
     Route: 058
     Dates: start: 20230612
  28. DARATUMUMAB [Suspect]
     Active Substance: DARATUMUMAB
     Dosage: 1800.000MG
     Route: 058
     Dates: start: 20230619
  29. DARATUMUMAB [Suspect]
     Active Substance: DARATUMUMAB
     Dosage: 1800.000MG
     Route: 058
     Dates: start: 20230626
  30. DARATUMUMAB [Suspect]
     Active Substance: DARATUMUMAB
     Dosage: 1800.000MG
     Route: 058
     Dates: start: 20230703
  31. DARATUMUMAB [Suspect]
     Active Substance: DARATUMUMAB
     Dosage: 1800.000MG
     Route: 058
     Dates: start: 20230710
  32. DARATUMUMAB [Suspect]
     Active Substance: DARATUMUMAB
     Dosage: 1800.000MG
     Route: 058
     Dates: start: 20230721
  33. DARATUMUMAB [Suspect]
     Active Substance: DARATUMUMAB
     Dosage: 1800.000MG
     Route: 058
     Dates: start: 20230807
  34. DARATUMUMAB [Suspect]
     Active Substance: DARATUMUMAB
     Dosage: 1800.000MG
     Route: 058
     Dates: start: 20230821
  35. DARATUMUMAB [Suspect]
     Active Substance: DARATUMUMAB
     Dosage: 1800.000MG
     Route: 058
     Dates: start: 20230904
  36. DARATUMUMAB [Suspect]
     Active Substance: DARATUMUMAB
     Dosage: 1800.000MG
     Route: 058
     Dates: start: 20231002
  37. DARATUMUMAB [Suspect]
     Active Substance: DARATUMUMAB
     Dosage: 1800.000MG
     Route: 058
     Dates: start: 20231016
  38. DARATUMUMAB [Suspect]
     Active Substance: DARATUMUMAB
     Dosage: 1800.000MG
     Route: 058
     Dates: start: 20231030
  39. DARATUMUMAB [Suspect]
     Active Substance: DARATUMUMAB
     Dosage: 1800.000MG
     Route: 058
     Dates: start: 20231127
  40. DARATUMUMAB [Suspect]
     Active Substance: DARATUMUMAB
     Dosage: 1800.000MG
     Route: 058
     Dates: start: 20231227
  41. DARATUMUMAB [Suspect]
     Active Substance: DARATUMUMAB
     Dosage: 1800.000MG
     Route: 058
     Dates: start: 20240124
  42. DARATUMUMAB [Suspect]
     Active Substance: DARATUMUMAB
     Dosage: 1800.000MG
     Route: 065
     Dates: start: 20230515
  43. DARATUMUMAB [Suspect]
     Active Substance: DARATUMUMAB
     Dosage: 8.000MG/KG
     Route: 042
     Dates: start: 20230515
  44. DARATUMUMAB [Suspect]
     Active Substance: DARATUMUMAB
     Dosage: 8.000MG/KG
     Route: 042
     Dates: start: 20230516
  45. LENALIDOMIDE [Suspect]
     Active Substance: LENALIDOMIDE
     Dosage: 2.500MG
     Route: 048
     Dates: start: 20230515, end: 20230530
  46. LENALIDOMIDE [Suspect]
     Active Substance: LENALIDOMIDE
     Dosage: 2.500MG
     Route: 048
     Dates: start: 20231030, end: 20231120
  47. LENALIDOMIDE [Suspect]
     Active Substance: LENALIDOMIDE
     Dosage: 2.500MG
     Route: 048
     Dates: start: 20231127, end: 20231218
  48. LENALIDOMIDE [Suspect]
     Active Substance: LENALIDOMIDE
     Dosage: 2.500MG
     Route: 048
     Dates: start: 20231227, end: 20240117
  49. LENALIDOMIDE [Suspect]
     Active Substance: LENALIDOMIDE
     Dosage: 2.500MG
     Route: 048
     Dates: start: 20240124
  50. LENALIDOMIDE [Suspect]
     Active Substance: LENALIDOMIDE
     Indication: Plasma cell myeloma
     Dosage: 3.000MG
     Route: 048
     Dates: start: 20230807, end: 20230827
  51. LENALIDOMIDE [Suspect]
     Active Substance: LENALIDOMIDE
     Dosage: 3.000MG
     Route: 048
     Dates: start: 20230904, end: 20230925
  52. LENALIDOMIDE [Suspect]
     Active Substance: LENALIDOMIDE
     Dosage: 3.000MG
     Route: 048
     Dates: start: 20231004, end: 20231025
  53. LENALIDOMIDE [Suspect]
     Active Substance: LENALIDOMIDE
     Dosage: 5.000MG
     Route: 048
     Dates: start: 20230619, end: 20230702

REACTIONS (1)
  - Pneumonia [Recovered/Resolved]

NARRATIVE: CASE EVENT DATE: 20240212
